FAERS Safety Report 4592138-3 (Version None)
Quarter: 2005Q1

REPORT INFORMATION
  Report Type: 
  Country: None (occurrence: None)
  Receive Date: 20050125
  Receipt Date: 20040816
  Transmission Date: 20050727
  Serious: No
  Sender: FDA-Public Use
  Company Number: USA040875691

PATIENT
  Sex: Female

DRUGS (1)
  1. FORTEO [Suspect]
     Dates: end: 20040622

REACTIONS (7)
  - ASTHENIA [None]
  - DECREASED APPETITE [None]
  - DIARRHOEA [None]
  - FEELING ABNORMAL [None]
  - LOCAL SWELLING [None]
  - PHARYNGOLARYNGEAL PAIN [None]
  - PYREXIA [None]
